FAERS Safety Report 21805483 (Version 1)
Quarter: 2023Q1

REPORT INFORMATION
  Report Type: Other
  Country: HR (occurrence: None)
  Receive Date: 20230102
  Receipt Date: 20230102
  Transmission Date: 20230418
  Serious: Yes (Other)
  Sender: FDA-Public Use
  Company Number: HR-ROCHE-3253387

PATIENT
  Age: 77 Year
  Sex: Female

DRUGS (1)
  1. ATEZOLIZUMAB [Suspect]
     Active Substance: ATEZOLIZUMAB
     Indication: Transitional cell carcinoma
     Route: 065

REACTIONS (2)
  - Asthenia [Unknown]
  - Fatigue [Unknown]
